FAERS Safety Report 5978779-7 (Version None)
Quarter: 2008Q4

REPORT INFORMATION
  Report Type: 
  Country: None (occurrence: None)
  Receive Date: 20081204
  Receipt Date: 20081118
  Transmission Date: 20090506
  Serious: Yes (Hospitalization)
  Sender: FDA-Public Use
  Company Number: PL-ROCHE-598116

PATIENT
  Age: 51 Year
  Sex: Male

DRUGS (5)
  1. PEGASYS [Suspect]
     Indication: HEPATITIS C
     Route: 065
     Dates: start: 20071002, end: 20080102
  2. COPEGUS [Suspect]
     Indication: HEPATITIS C
     Dosage: 2 TABLETS IN MORNING, 2 IN AFTERNOON
     Route: 048
     Dates: start: 20071002, end: 20071217
  3. COPEGUS [Suspect]
     Dosage: 1 TAB IN MORNING, 2 IN AFTERNOON
     Route: 048
     Dates: start: 20071217, end: 20080102
  4. PEG-INTRON [Concomitant]
     Indication: HEPATITIS C
     Route: 058
     Dates: start: 20060830, end: 20070731
  5. REBETOL [Concomitant]
     Indication: HEPATITIS C
     Dosage: REPORTED AS 2X2 TABS/DAY
     Route: 048
     Dates: start: 20060830, end: 20070731

REACTIONS (7)
  - ANAEMIA [None]
  - ASCITES [None]
  - DEPRESSION [None]
  - DRUG INEFFECTIVE [None]
  - DYSPNOEA [None]
  - HEPATIC ENCEPHALOPATHY [None]
  - NAUSEA [None]
